FAERS Safety Report 8401944-6 (Version None)
Quarter: 2012Q2

REPORT INFORMATION
  Report Type: 
  Country: None (occurrence: None)
  Receive Date: 20120601
  Receipt Date: 20120530
  Transmission Date: 20120825
  Serious: Yes (Congenital Anomaly, Other)
  Sender: FDA-Public Use
  Company Number: CH-PFIZER INC-2012129793

PATIENT
  Sex: Male

DRUGS (7)
  1. HUMALOG [Concomitant]
     Indication: TYPE 1 DIABETES MELLITUS
     Dosage: 6 IU, 3X/DAY
     Route: 064
  2. FLUOXETINE HCL [Suspect]
     Indication: DEPRESSION
     Dosage: UNK
     Route: 064
     Dates: start: 20090101, end: 20110517
  3. ATORVASTATIN CALCIUM [Suspect]
     Dosage: UNK
     Route: 064
     Dates: end: 20110517
  4. IRBESARTAN [Suspect]
     Indication: ESSENTIAL HYPERTENSION
     Dosage: 150 MG, 1X/DAY
     Route: 064
     Dates: end: 20110517
  5. TRANXILIUM [Suspect]
     Indication: DEPRESSION
     Dosage: 10 MG, AS NEEDED
     Route: 064
     Dates: start: 20110517, end: 20110920
  6. AMLODIPINE [Suspect]
     Indication: ESSENTIAL HYPERTENSION
     Dosage: 5 MG, 1X/DAY
     Route: 064
     Dates: start: 20110517
  7. INSULATARD NPH HUMAN [Concomitant]
     Indication: TYPE 1 DIABETES MELLITUS
     Dosage: 20 IU, 1X/DAY
     Route: 064

REACTIONS (5)
  - MATERNAL EXPOSURE DURING PREGNANCY [None]
  - ANKYLOGLOSSIA CONGENITAL [None]
  - SHOULDER DYSTOCIA [None]
  - MACROSOMIA [None]
  - COMPLICATION OF DELIVERY [None]
